FAERS Safety Report 4860901-7 (Version None)
Quarter: 2005Q4

REPORT INFORMATION
  Report Type: 
  Country: None (occurrence: None)
  Receive Date: 20051216
  Receipt Date: 20051206
  Transmission Date: 20060501
  Serious: Yes (Life-Threatening)
  Sender: FDA-Public Use
  Company Number: JP200512000012

PATIENT
  Age: 64 Year
  Sex: Female
  Weight: 33 kg

DRUGS (13)
  1. GEMZAR [Suspect]
     Indication: LUNG NEOPLASM MALIGNANT
     Dosage: 900 MG, OTHER, INTRAVENOUS
     Route: 042
     Dates: start: 20051108
  2. NAVELBINE ^ASTA MEDICA^ (VINORELBINE DITARTRATE) [Concomitant]
  3. RANITIDINE HYDROCHLORIDE [Concomitant]
  4. DISOPYRAMIDE (DISOPYRAMIDE) CAPSULE [Concomitant]
  5. MAGNESIUM OXIDE (MAGNESIUM OXIDE) TABLET [Concomitant]
  6. AZULENE (AZULENE) [Concomitant]
  7. DEXAMETHASONE [Concomitant]
  8. ASPIRIN [Concomitant]
  9. METOCLOPRAMIDE [Concomitant]
  10. OMEPRAZOLE [Concomitant]
  11. ETIZOLAM (ETIZOLAM) ORAL DRUG [Concomitant]
  12. MORPHINE HYDROCHLORIDE (MORPHINE HYDROCHLORIDE) LIQUID [Concomitant]
  13. FENTANYL (FENTANYL) TAPE [Concomitant]

REACTIONS (5)
  - ACUTE RESPIRATORY DISTRESS SYNDROME [None]
  - BONE MARROW FAILURE [None]
  - DISSEMINATED INTRAVASCULAR COAGULATION [None]
  - PNEUMONIA [None]
  - SEPTIC SHOCK [None]
